FAERS Safety Report 6066593-6 (Version None)
Quarter: 2009Q1

REPORT INFORMATION
  Report Type: 
  Country: None (occurrence: None)
  Receive Date: 20090205
  Receipt Date: 20090202
  Transmission Date: 20090719
  Serious: Yes (Other)
  Sender: FDA-Public Use
  Company Number: B0551322A

PATIENT
  Age: 42 Year
  Sex: Female

DRUGS (4)
  1. SERETIDE [Suspect]
     Indication: ASTHMA
     Route: 055
  2. FLUTIDE [Suspect]
     Indication: DRUG USE FOR UNKNOWN INDICATION
     Route: 055
  3. THEO-DUR [Concomitant]
     Indication: ASTHMA
     Dosage: 400MG TWICE PER DAY
     Route: 048
     Dates: start: 20060510
  4. ONON [Concomitant]
     Indication: ASTHMA
     Dosage: 50MG PER DAY
     Route: 048
     Dates: start: 20060510

REACTIONS (8)
  - COUGH [None]
  - DYSPNOEA [None]
  - PLEURAL EFFUSION [None]
  - PNEUMONIA [None]
  - PYREXIA [None]
  - TONGUE COATED [None]
  - TONSILLITIS [None]
  - VOMITING [None]
